FAERS Safety Report 8054440-2 (Version None)
Quarter: 2012Q1

REPORT INFORMATION
  Report Type: 
  Country: None (occurrence: None)
  Receive Date: 20120118
  Receipt Date: 20120109
  Transmission Date: 20120608
  Serious: Yes (Other)
  Sender: FDA-Public Use
  Company Number: US-ASTRAZENECA-2011SE77048

PATIENT
  Age: 49 Year
  Sex: Female

DRUGS (4)
  1. PRILOSEC [Suspect]
     Indication: GASTROOESOPHAGEAL REFLUX DISEASE
     Route: 048
  2. PULMICORT [Suspect]
     Indication: ASTHMA
     Route: 055
  3. WARFARIN SODIUM [Concomitant]
  4. NEXIUM [Suspect]
     Indication: GASTROOESOPHAGEAL REFLUX DISEASE
     Route: 048

REACTIONS (4)
  - OFF LABEL USE [None]
  - CEREBROVASCULAR ACCIDENT [None]
  - PULMONARY THROMBOSIS [None]
  - ASTHMA [None]
